FAERS Safety Report 25941074 (Version 1)
Quarter: 2025Q4

REPORT INFORMATION
  Report Type: Spontaneous
  Country: CN (occurrence: CN)
  Receive Date: 20251020
  Receipt Date: 20251020
  Transmission Date: 20260117
  Serious: Yes (Life-Threatening, Hospitalization)
  Sender: BAYER HEALTHCARE PHARMACEUTICALS INC.
  Company Number: CN-BAYER-2025A137030

PATIENT
  Age: 53 Year
  Sex: Female
  Weight: 70 kg

DRUGS (5)
  1. ULTRAVIST [Suspect]
     Active Substance: IOPROMIDE
     Indication: Computerised tomogram head
     Dosage: 100 ML, ONCE
     Route: 042
     Dates: start: 20251013, end: 20251013
  2. ULTRAVIST [Suspect]
     Active Substance: IOPROMIDE
     Indication: Arteriogram carotid
  3. ULTRAVIST [Suspect]
     Active Substance: IOPROMIDE
     Indication: Ruptured cerebral aneurysm
  4. ULTRAVIST [Suspect]
     Active Substance: IOPROMIDE
     Indication: Intraventricular haemorrhage
  5. ULTRAVIST [Suspect]
     Active Substance: IOPROMIDE
     Indication: Subarachnoid haemorrhage

REACTIONS (4)
  - Lip swelling [Recovering/Resolving]
  - Hypoaesthesia oral [Recovering/Resolving]
  - Tachypnoea [Recovering/Resolving]
  - Blood pressure decreased [Recovered/Resolved]

NARRATIVE: CASE EVENT DATE: 20251013
